FAERS Safety Report 4870092-4 (Version None)
Quarter: 2005Q4

REPORT INFORMATION
  Report Type: 
  Country: None (occurrence: None)
  Receive Date: 20051223
  Receipt Date: 20020913
  Transmission Date: 20060501
  Serious: Yes (Death, Life-Threatening)
  Sender: FDA-Public Use
  Company Number: HQ3835716AUG2002

PATIENT
  Age: 77 Year
  Sex: Female

DRUGS (12)
  1. MYLOTARG [Suspect]
     Indication: ACUTE MYELOID LEUKAEMIA
     Dosage: 8.297 MG 1X PER 1 DAY, INTRAVENOUS; 5.53 MG 1X PER 1 DAY, INTRAVENOUS
     Route: 042
     Dates: start: 20020810, end: 20020810
  2. MYLOTARG [Suspect]
     Indication: ACUTE MYELOID LEUKAEMIA
     Dosage: 8.297 MG 1X PER 1 DAY, INTRAVENOUS; 5.53 MG 1X PER 1 DAY, INTRAVENOUS
     Route: 042
     Dates: start: 20020817, end: 20020817
  3. CYTARABINE [Suspect]
     Indication: ACUTE MYELOID LEUKAEMIA
     Dosage: 138.29 MG 1X PER 1 DAY, INTRAVENOUS
     Route: 042
     Dates: start: 20020811, end: 20020817
  4. ACYCLOVIR [Concomitant]
  5. PERIDEX (CHLORHEXIDINE GLUCONATE) [Concomitant]
  6. PREVACID [Concomitant]
  7. FLUCONAZOLE [Concomitant]
  8. GENTAMICIN [Concomitant]
  9. LEVOFLOXACIN [Concomitant]
  10. IPRATROPIUM BROMIDE [Concomitant]
  11. ALBUTEROL [Concomitant]
  12. SEREVENT [Concomitant]

REACTIONS (8)
  - ALANINE AMINOTRANSFERASE INCREASED [None]
  - ASPARTATE AMINOTRANSFERASE INCREASED [None]
  - BLOOD ALKALINE PHOSPHATASE INCREASED [None]
  - BLOOD BILIRUBIN INCREASED [None]
  - BLOOD CREATININE INCREASED [None]
  - DISEASE PROGRESSION [None]
  - PLATELET COUNT DECREASED [None]
  - PNEUMONIA FUNGAL [None]
